FAERS Safety Report 17657440 (Version 5)
Quarter: 2021Q3

REPORT INFORMATION
  Report Type: Report from Study
  Country: IT (occurrence: IT)
  Receive Date: 20200410
  Receipt Date: 20210901
  Transmission Date: 20211014
  Serious: Yes (Other)
  Sender: FDA-Public Use
  Company Number: NVSC2020IT096581

PATIENT
  Age: 57 Year
  Sex: Female

DRUGS (11)
  1. TRAMETINIB [Suspect]
     Active Substance: TRAMETINIB
     Indication: MALIGNANT MELANOMA
     Dosage: 2 OT
     Route: 048
     Dates: start: 20180309, end: 20181025
  2. TRAMETINIB [Suspect]
     Active Substance: TRAMETINIB
     Dosage: 2 OT
     Route: 065
     Dates: start: 201909
  3. TAFINLAR [Suspect]
     Active Substance: DABRAFENIB MESYLATE
     Dosage: 300 OT
     Route: 065
     Dates: start: 20181108, end: 20190614
  4. TAFINLAR [Suspect]
     Active Substance: DABRAFENIB MESYLATE
     Indication: MALIGNANT MELANOMA
     Dosage: 300 OT
     Route: 065
     Dates: start: 20180309, end: 20180401
  5. TRAMETINIB [Suspect]
     Active Substance: TRAMETINIB
     Dosage: 2 OT
     Route: 065
     Dates: start: 20181108, end: 20190614
  6. TRAMETINIB [Suspect]
     Active Substance: TRAMETINIB
     Dosage: 2 OT
     Route: 065
     Dates: start: 20190616, end: 201909
  7. TAFINLAR [Suspect]
     Active Substance: DABRAFENIB MESYLATE
     Dosage: 300 OT
     Route: 065
     Dates: start: 20180406, end: 20181025
  8. TAFINLAR [Suspect]
     Active Substance: DABRAFENIB MESYLATE
     Dosage: 300 OT
     Route: 065
     Dates: start: 20190616, end: 201909
  9. TRAMETINIB [Suspect]
     Active Substance: TRAMETINIB
     Dosage: 2 OT
     Route: 048
     Dates: start: 20181106, end: 20181106
  10. TAFINLAR [Suspect]
     Active Substance: DABRAFENIB MESYLATE
     Dosage: 300 OT
     Route: 065
     Dates: start: 20181106, end: 20181106
  11. TAFINLAR [Suspect]
     Active Substance: DABRAFENIB MESYLATE
     Dosage: 300 OT
     Route: 065
     Dates: start: 201909

REACTIONS (8)
  - Basal cell carcinoma [Recovered/Resolved]
  - Pyrexia [Recovered/Resolved]
  - Back pain [Recovered/Resolved]
  - Second primary malignancy [Recovered/Resolved]
  - Basal cell carcinoma [Recovered/Resolved]
  - Pyrexia [Recovered/Resolved]
  - Actinic keratosis [Recovered/Resolved]
  - Second primary malignancy [Recovered/Resolved]

NARRATIVE: CASE EVENT DATE: 20190712
